FAERS Safety Report 8375136-3 (Version None)
Quarter: 2012Q2

REPORT INFORMATION
  Report Type: 
  Country: None (occurrence: None)
  Receive Date: 20120521
  Receipt Date: 20120510
  Transmission Date: 20120825
  Serious: Yes (Other)
  Sender: FDA-Public Use
  Company Number: AR-ELI_LILLY_AND_COMPANY-AR201204000159

PATIENT
  Sex: Male

DRUGS (3)
  1. METFORMIN HCL [Concomitant]
  2. ANTIHYPERTENSIVES [Concomitant]
  3. BYETTA [Suspect]
     Indication: DIABETES MELLITUS
     Dosage: 10 UG, BID
     Dates: start: 20100101, end: 20120101

REACTIONS (6)
  - SCAN ABNORMAL [None]
  - SCAN ABDOMEN ABNORMAL [None]
  - GASTRIC DISORDER [None]
  - PANCREATIC CYST [None]
  - WHITE BLOOD CELL COUNT INCREASED [None]
  - PAIN [None]
